FAERS Safety Report 21736906 (Version 1)
Quarter: 2022Q4

REPORT INFORMATION
  Report Type: Spontaneous
  Country: IT (occurrence: IT)
  Receive Date: 20221216
  Receipt Date: 20221216
  Transmission Date: 20230113
  Serious: Yes (Other)
  Sender: FDA-Public Use
  Company Number: IT-002147023-NVSC2022IT256507

PATIENT
  Sex: Male

DRUGS (7)
  1. FLUDARABINE PHOSPHATE [Suspect]
     Active Substance: FLUDARABINE PHOSPHATE
     Indication: Acute lymphocytic leukaemia refractory
     Dosage: UNK, THERAPY END DATE : ASKU
     Route: 065
     Dates: start: 20220927
  2. FLUDARABINE PHOSPHATE [Suspect]
     Active Substance: FLUDARABINE PHOSPHATE
     Dosage: (G1-5), THERAPY START DATE : ASKU , THERAPY END DATE : ASKU
  3. VINCRISTINE [Suspect]
     Active Substance: VINCRISTINE
     Indication: Acute lymphocytic leukaemia refractory
     Dosage: 2 DOSAGE FORM, THERAPY START DATE : ASKU , THERAPY END DATE : ASKU, UNIT DOSE : 2 DOSAGE FORM
     Route: 065
  4. CYTARABINE [Suspect]
     Active Substance: CYTARABINE
     Indication: Acute lymphocytic leukaemia refractory
     Dosage: (G1-5), THERAPY START DATE : ASKU , THERAPY END DATE : ASKU
     Route: 065
  5. CYCLOPHOSPHAMIDE [Suspect]
     Active Substance: CYCLOPHOSPHAMIDE
     Indication: Acute lymphocytic leukaemia refractory
     Dosage: UNK, THERAPY END DATE : ASKU
     Dates: start: 20220927
  6. MITOXANTRONE [Suspect]
     Active Substance: MITOXANTRONE HYDROCHLORIDE
     Indication: Acute lymphocytic leukaemia refractory
     Dosage: (G1-3), THERAPY START DATE : ASKU , THERAPY END DATE : ASKU
  7. PONATINIB [Suspect]
     Active Substance: PONATINIB
     Indication: Acute lymphocytic leukaemia refractory
     Dosage: UNK, THERAPY START DATE : ASKU , THERAPY END DATE : ASKU

REACTIONS (2)
  - Acute lymphocytic leukaemia refractory [Recovering/Resolving]
  - Acute leukaemia [Recovering/Resolving]
